FAERS Safety Report 7371904-5 (Version None)
Quarter: 2011Q1

REPORT INFORMATION
  Report Type: 
  Country: None (occurrence: None)
  Receive Date: 20110324
  Receipt Date: 20110315
  Transmission Date: 20110831
  Serious: Yes (Hospitalization)
  Sender: FDA-Public Use
  Company Number: FR-ASTRAZENECA-2011SE14725

PATIENT
  Age: 34009 Day
  Sex: Female

DRUGS (10)
  1. FORLAX [Concomitant]
     Dates: end: 20110101
  2. TAREG [Concomitant]
     Dates: end: 20110105
  3. HEMIGOXINE NATIVELLE [Suspect]
     Indication: ATRIAL FIBRILLATION
     Route: 048
     Dates: end: 20110117
  4. LEVOTHYROX [Concomitant]
  5. ACEBUTOLOL [Concomitant]
     Dates: end: 20110105
  6. TEMERIT [Suspect]
     Indication: HYPERTENSION
     Route: 048
     Dates: start: 20110106, end: 20110117
  7. ATACAND [Suspect]
     Indication: HYPERTENSION
     Route: 048
     Dates: start: 20110106, end: 20110117
  8. COLCHIMAX [Suspect]
     Indication: GOUT
     Route: 048
     Dates: end: 20110117
  9. PREVISCAN [Suspect]
     Indication: ATRIAL FIBRILLATION
     Dosage: PRN
     Route: 048
     Dates: end: 20110117
  10. ALLOPURINOL [Suspect]
     Indication: GOUT
     Route: 048
     Dates: end: 20110117

REACTIONS (2)
  - RENAL FAILURE ACUTE [None]
  - CONDITION AGGRAVATED [None]
